FAERS Safety Report 9343637 (Version 2)
Quarter: 2013Q2

REPORT INFORMATION
  Report Type: Spontaneous
  Country: DE (occurrence: DE)
  Receive Date: 20130612
  Receipt Date: 20130628
  Transmission Date: 20140414
  Serious: Yes (Other)
  Sender: FDA-Public Use
  Company Number: DE-AMGEN-DEUSP2013040828

PATIENT
  Age: 70 Year
  Sex: Female
  Weight: 42 kg

DRUGS (2)
  1. PROLIA [Suspect]
     Indication: OSTEOPOROSIS POSTMENOPAUSAL
     Dosage: 60 MG, Q6MO
     Route: 058
     Dates: start: 20120807
  2. CALCIMAGON D3 [Concomitant]
     Indication: OSTEOPOROSIS
     Dosage: 1 TABLET, QD
     Route: 048

REACTIONS (4)
  - Femur fracture [Recovered/Resolved]
  - Pain [Unknown]
  - Fatigue [Unknown]
  - Arthralgia [Unknown]
